FAERS Safety Report 11926171 (Version 2)
Quarter: 2016Q1

REPORT INFORMATION
  Report Type: Report from Study
  Country: US (occurrence: US)
  Receive Date: 20160119
  Receipt Date: 20160121
  Transmission Date: 20160526
  Serious: Yes (Hospitalization, Other)
  Sender: FDA-Public Use
  Company Number: US-GILEAD-2015-0179110

PATIENT
  Age: 50 Year
  Sex: Female
  Weight: 70 kg

DRUGS (2)
  1. REMODULIN [Suspect]
     Active Substance: TREPROSTINIL
     Indication: PRODUCT USED FOR UNKNOWN INDICATION
     Route: 065
  2. AMBRISENTAN [Suspect]
     Active Substance: AMBRISENTAN
     Indication: PULMONARY ARTERIAL HYPERTENSION
     Dosage: 10 MG, QD
     Route: 065
     Dates: start: 20141121

REACTIONS (11)
  - Weight decreased [Unknown]
  - Infusion site pruritus [Unknown]
  - Infusion site infection [Unknown]
  - Parathyroid disorder [Unknown]
  - Infusion site swelling [Unknown]
  - Jaw disorder [Unknown]
  - Diarrhoea [Unknown]
  - Infusion site bruising [Unknown]
  - Catheter site discharge [Unknown]
  - Depression [Unknown]
  - Peripheral swelling [Unknown]

NARRATIVE: CASE EVENT DATE: 201512
